FAERS Safety Report 8835956 (Version 4)
Quarter: 2013Q4

REPORT INFORMATION
  Report Type: Spontaneous
  Country: US (occurrence: US)
  Receive Date: 20121011
  Receipt Date: 20131230
  Transmission Date: 20140711
  Serious: Yes (Life-Threatening, Hospitalization, Disabling, Other)
  Sender: FDA-Public Use
  Company Number: US-009507513-1210USA003250

PATIENT
  Sex: Female

DRUGS (3)
  1. FOSAMAX [Suspect]
     Indication: OSTEOPOROSIS
     Dosage: 10 MG, UNK
     Route: 048
     Dates: start: 19960115
  2. FOSAMAX [Suspect]
     Dosage: 70 MG, UNK
     Route: 048
     Dates: end: 200606
  3. PRILOSEC [Concomitant]
     Dosage: UNK
     Dates: start: 1993, end: 2006

REACTIONS (44)
  - Femur fracture [Recovered/Resolved]
  - Intramedullary rod insertion [Unknown]
  - Femur fracture [Recovered/Resolved]
  - Intramedullary rod insertion [Unknown]
  - Hip arthroplasty [Unknown]
  - Pulmonary embolism [Unknown]
  - Impaired healing [Unknown]
  - Osteoarthritis [Unknown]
  - Coagulopathy [Unknown]
  - Deep vein thrombosis [Unknown]
  - Hip arthroplasty [Unknown]
  - Knee operation [Unknown]
  - Cholecystectomy [Unknown]
  - Hypertension [Not Recovered/Not Resolved]
  - Fracture [Unknown]
  - Spinal fracture [Unknown]
  - Fall [Unknown]
  - Bursitis [Unknown]
  - Foot fracture [Recovering/Resolving]
  - Deep vein thrombosis [Unknown]
  - Joint injection [Not Recovered/Not Resolved]
  - Stress fracture [Unknown]
  - Osteoarthritis [Unknown]
  - Asthma [Recovering/Resolving]
  - Adverse drug reaction [Unknown]
  - Cystitis [Unknown]
  - Hypertension [Unknown]
  - Blood cholesterol increased [Unknown]
  - Pancreatic disorder [Unknown]
  - Ovarian cystectomy [Unknown]
  - Nasal operation [Unknown]
  - Appendicectomy [Unknown]
  - Bunion operation [Unknown]
  - Tooth extraction [Unknown]
  - Cystitis interstitial [Unknown]
  - Gallbladder operation [Unknown]
  - Bone disorder [Unknown]
  - Injection site bruising [Unknown]
  - Myositis ossificans [Unknown]
  - Extraskeletal ossification [Unknown]
  - Fall [Unknown]
  - Urticaria [Unknown]
  - Back pain [Unknown]
  - Gastrooesophageal reflux disease [Unknown]
